FAERS Safety Report 17771344 (Version 1)
Quarter: 2020Q2

REPORT INFORMATION
  Report Type: Report from Study
  Country: US (occurrence: US)
  Receive Date: 20200512
  Receipt Date: 20200512
  Transmission Date: 20200714
  Serious: Yes (Life-Threatening, Hospitalization, Other)
  Sender: FDA-Public Use
  Company Number: US-PFIZER INC-2020187274

PATIENT
  Age: 34 Year
  Sex: Female
  Weight: 64.4 kg

DRUGS (5)
  1. TYVASO [Suspect]
     Active Substance: TREPROSTINIL
     Dosage: UNK
     Route: 055
     Dates: start: 20200326
  2. TYVASO [Suspect]
     Active Substance: TREPROSTINIL
     Indication: PULMONARY ARTERIAL HYPERTENSION
     Dosage: 24 UG, 4X/DAY (24 ?G, QID (FOUR TIMES A DAY), INHALATION)
     Dates: start: 2020
  3. ILOPROST. [Suspect]
     Active Substance: ILOPROST
     Indication: PRODUCT USED FOR UNKNOWN INDICATION
     Dosage: UNK
     Dates: start: 202004, end: 202004
  4. SILDENAFIL CITRATE. [Suspect]
     Active Substance: SILDENAFIL CITRATE
     Indication: PRODUCT USED FOR UNKNOWN INDICATION
     Dosage: UNK
     Dates: start: 20200420, end: 20200503
  5. TYVASO [Suspect]
     Active Substance: TREPROSTINIL
     Dosage: UNK, 4X/DAY (18-54 ?G (3-9 BREATHS) FOUR TIMES A DAY)
     Route: 055

REACTIONS (11)
  - Hypoxia [Unknown]
  - Respiratory rate increased [Unknown]
  - Malaise [Unknown]
  - Cardio-respiratory arrest [Unknown]
  - Pulmonary arterial hypertension [Unknown]
  - Cough [Unknown]
  - Chest discomfort [Unknown]
  - Anxiety [Unknown]
  - Dyspnoea [Unknown]
  - Condition aggravated [Unknown]
  - Diarrhoea [Unknown]

NARRATIVE: CASE EVENT DATE: 2020
